FAERS Safety Report 17842501 (Version 3)
Quarter: 2020Q3

REPORT INFORMATION
  Report Type: Report from Study
  Country: IN (occurrence: IN)
  Receive Date: 20200530
  Receipt Date: 20200710
  Transmission Date: 20201103
  Serious: Yes (Hospitalization, Other)
  Sender: FDA-Public Use
  Company Number: PHHY2017IN193195

PATIENT
  Age: 45 Year
  Sex: Male

DRUGS (21)
  1. SCAPHO [Suspect]
     Active Substance: SECUKINUMAB
     Dosage: 150 MG, Q2W (ONCE IN 15 DAYS FOR 6 DOSES)
     Route: 058
     Dates: start: 20190905
  2. SCAPHO [Suspect]
     Active Substance: SECUKINUMAB
     Dosage: 300 MG, Q2W
     Route: 065
     Dates: start: 20200630
  3. SCAPHO [Suspect]
     Active Substance: SECUKINUMAB
     Dosage: 300 MG, QW
     Route: 058
     Dates: start: 201809
  4. HALOVATE [Suspect]
     Active Substance: HALOBETASOL PROPIONATE
     Indication: PRODUCT USED FOR UNKNOWN INDICATION
     Dosage: 30 MG, UNKNOWN
     Route: 065
  5. SCAPHO [Suspect]
     Active Substance: SECUKINUMAB
     Dosage: 300 MG, QW
     Route: 058
     Dates: start: 20181025
  6. SCAPHO [Suspect]
     Active Substance: SECUKINUMAB
     Dosage: 150 MG, ONCE IN 15 DAYS FOR 6 DOSES
     Route: 058
     Dates: start: 20181206
  7. SCAPHO [Suspect]
     Active Substance: SECUKINUMAB
     Dosage: 300 MG, Q2W (ONCE IN 15 DAYS FOR 6 DOSES)
     Route: 058
     Dates: start: 20190204
  8. SCAPHO [Suspect]
     Active Substance: SECUKINUMAB
     Dosage: 300 MG, QW
     Route: 058
     Dates: start: 20171226
  9. SCAPHO [Suspect]
     Active Substance: SECUKINUMAB
     Dosage: 300 MG, QW
     Route: 058
     Dates: start: 20181011
  10. SCAPHO [Suspect]
     Active Substance: SECUKINUMAB
     Dosage: UNK
     Route: 058
     Dates: start: 20190919
  11. BELISSA [Concomitant]
     Indication: PRODUCT USED FOR UNKNOWN INDICATION
     Dosage: UNK UNK, UNKNOWN(BELLISSA PSORIA SOAP 75MG)
     Route: 065
  12. SCAPHO [Suspect]
     Active Substance: SECUKINUMAB
     Indication: PSORIASIS
     Dosage: 300 MG, QW
     Route: 058
     Dates: start: 20170708
  13. SCAPHO [Suspect]
     Active Substance: SECUKINUMAB
     Dosage: 300 MG, QW
     Route: 058
     Dates: start: 20171219
  14. SCAPHO [Suspect]
     Active Substance: SECUKINUMAB
     Dosage: 300 MG, Q2W (ONCE IN 15 DAYS FOR 6 DOSES)
     Route: 058
     Dates: start: 20190121
  15. SCAPHO [Suspect]
     Active Substance: SECUKINUMAB
     Dosage: 300 MG, Q2W
     Route: 065
     Dates: start: 20200606
  16. SCAPHO [Suspect]
     Active Substance: SECUKINUMAB
     Dosage: 300 MG, QW
     Route: 058
     Dates: start: 20181004
  17. SCAPHO [Suspect]
     Active Substance: SECUKINUMAB
     Dosage: 150 MG, Q2W (ONCE IN 15 DAYS FOR 6 DOSES)
     Route: 058
     Dates: start: 20190429
  18. SCAPHO [Suspect]
     Active Substance: SECUKINUMAB
     Dosage: 150 MG, Q2W (ONCE IN 15 DAYS FOR 6 DOSES)
     Route: 058
     Dates: start: 20190514
  19. SCAPHO [Suspect]
     Active Substance: SECUKINUMAB
     Dosage: 300 MG, QW
     Route: 058
     Dates: start: 20180927
  20. SCAPHO [Suspect]
     Active Substance: SECUKINUMAB
     Dosage: 150 MG, Q2W (ONCE IN 15 DAYS FOR 6 DOSES)
     Route: 058
     Dates: start: 20190415
  21. SCAPHO [Suspect]
     Active Substance: SECUKINUMAB
     Dosage: 300 MG, QMO
     Route: 058
     Dates: start: 20200525

REACTIONS (10)
  - Skin hypertrophy [Not Recovered/Not Resolved]
  - Skin lesion [Not Recovered/Not Resolved]
  - Platelet count decreased [Recovered/Resolved]
  - Erythema [Not Recovered/Not Resolved]
  - Product prescribing error [Not Recovered/Not Resolved]
  - Lung hyperinflation [Recovered/Resolved]
  - Abdominal pain upper [Recovered/Resolved]
  - Skin exfoliation [Not Recovered/Not Resolved]
  - Psoriasis area severity index increased [Unknown]
  - Dengue fever [Recovered/Resolved]

NARRATIVE: CASE EVENT DATE: 20171219
